FAERS Safety Report 19817320 (Version 1)
Quarter: 2021Q3

REPORT INFORMATION
  Report Type: Spontaneous
  Country: US (occurrence: US)
  Receive Date: 20210910
  Receipt Date: 20210910
  Transmission Date: 20211014
  Serious: No
  Sender: FDA-Public Use
  Company Number: US-PAIPHARMA-2020-US-019967

PATIENT
  Age: 48 Year
  Sex: Male
  Weight: 95.71 kg

DRUGS (1)
  1. LACTULOSE SOLUTION USP, AF [Suspect]
     Active Substance: LACTULOSE
     Indication: CONSTIPATION
     Dosage: 30ML 3 TIMES PER DAY; REDUCED TO ONCE A DAY
     Route: 048
     Dates: start: 201809

REACTIONS (4)
  - Dental caries [Not Recovered/Not Resolved]
  - Tooth erosion [Not Recovered/Not Resolved]
  - Therapeutic product effect decreased [Not Recovered/Not Resolved]
  - Toothache [Not Recovered/Not Resolved]

NARRATIVE: CASE EVENT DATE: 20190930
